FAERS Safety Report 13577919 (Version 2)
Quarter: 2017Q2

REPORT INFORMATION
  Report Type: Spontaneous
  Country: CN (occurrence: CN)
  Receive Date: 20170524
  Receipt Date: 20170530
  Transmission Date: 20170830
  Serious: Yes (Death, Other)
  Sender: FDA-Public Use
  Company Number: CN-PFIZER INC-2017226249

PATIENT
  Age: 30 Year
  Sex: Female

DRUGS (2)
  1. MIFEPRISTONE [Concomitant]
     Active Substance: MIFEPRISTONE
     Indication: ECTOPIC PREGNANCY
     Dosage: 300MG DIVIDED DOSE (150MG 1ST DAY, 50MG AM OF DAY 2, 25MG PM OF DAY 2, 50MG AM OF DAY3, 25MG PM DAY3
     Route: 048
  2. METHOTREXATE. [Suspect]
     Active Substance: METHOTREXATE
     Indication: ECTOPIC PREGNANCY
     Dosage: 75 MG, SINGLE
     Route: 030

REACTIONS (2)
  - Product use in unapproved indication [Unknown]
  - Bone marrow failure [Fatal]

NARRATIVE: CASE EVENT DATE: 20170213
